FAERS Safety Report 5212468-1 (Version None)
Quarter: 2007Q1

REPORT INFORMATION
  Report Type: 
  Country: None (occurrence: None)
  Receive Date: 20070118
  Receipt Date: 20070104
  Transmission Date: 20070707
  Serious: Yes (Other)
  Sender: FDA-Public Use
  Company Number: US-SHR-US-2007-000354

PATIENT

DRUGS (1)
  1. LEUKINE [Suspect]

REACTIONS (1)
  - ATRIAL FIBRILLATION [None]
